FAERS Safety Report 6996344-X (Version None)
Quarter: 2010Q3

REPORT INFORMATION
  Report Type: 
  Country: None (occurrence: None)
  Receive Date: 20100918
  Receipt Date: 20090420
  Transmission Date: 20110219
  Serious: No
  Sender: FDA-Public Use
  Company Number: US-WYE-H08203509

PATIENT
  Sex: Female
  Weight: 89.89 kg

DRUGS (12)
  1. EFFEXOR XR [Suspect]
     Indication: HOT FLUSH
     Route: 048
     Dates: start: 20050714
  2. CELEBREX [Concomitant]
  3. OXYCONTIN [Concomitant]
  4. EVOXAC [Concomitant]
  5. REGLAN [Concomitant]
  6. ERGOCALCIFEROL [Concomitant]
  7. COUMADIN [Concomitant]
  8. NEXIUM [Concomitant]
  9. BENTYL [Concomitant]
  10. COMPAZINE [Concomitant]
  11. RITUXAN [Concomitant]
  12. COLACE [Concomitant]

REACTIONS (6)
  - DENTAL CARIES [None]
  - DRY MOUTH [None]
  - LIP DRY [None]
  - ORAL PAIN [None]
  - STOMATITIS [None]
  - TOOTH FRACTURE [None]
